FAERS Safety Report 5377888-3 (Version None)
Quarter: 2007Q3

REPORT INFORMATION
  Report Type: 
  Country: None (occurrence: None)
  Receive Date: 20070703
  Receipt Date: 20070622
  Transmission Date: 20080115
  Serious: Yes (Death)
  Sender: FDA-Public Use
  Company Number: CA-GENENTECH-243609

PATIENT
  Sex: Male

DRUGS (4)
  1. RITUXAN [Suspect]
     Indication: RHEUMATOID ARTHRITIS
     Dosage: 1 G, SINGLE
     Route: 042
     Dates: start: 20070523, end: 20070523
  2. METFORMIN [Concomitant]
     Indication: DIABETES MELLITUS
     Dates: end: 20070530
  3. CARDIAC MEDICATION NOS [Concomitant]
     Indication: MYOCARDIAL INFARCTION
  4. CARDIAC MEDICATION NOS [Concomitant]
     Indication: ANGINA PECTORIS

REACTIONS (1)
  - MYOCARDIAL INFARCTION [None]
